FAERS Safety Report 10496278 (Version 1)
Quarter: 2014Q4

REPORT INFORMATION
  Report Type: Report from Study
  Country: US (occurrence: US)
  Receive Date: 20141003
  Receipt Date: 20141003
  Transmission Date: 20150528
  Serious: Yes (Other)
  Sender: FDA-Public Use
  Company Number: US-MERCK-1410USA001239

PATIENT

DRUGS (3)
  1. CAPECITABINE. [Suspect]
     Active Substance: CAPECITABINE
     Indication: NEUROENDOCRINE CARCINOMA METASTATIC
     Dosage: 600 MG, BID
  2. TEMODAR [Suspect]
     Active Substance: TEMOZOLOMIDE
     Indication: NEUROENDOCRINE CARCINOMA METASTATIC
     Dosage: 150-200 MG/M2 IN 2 DOSES ON DAYS 10-14 WITH 14 DAYS BETWEEN CYCLES
     Route: 048
  3. YTTRIUM-90 [Suspect]
     Active Substance: YTTRIUM Y-90
     Indication: NEUROENDOCRINE CARCINOMA METASTATIC

REACTIONS (1)
  - Immune thrombocytopenic purpura [Unknown]
